FAERS Safety Report 15271318 (Version 3)
Quarter: 2018Q4

REPORT INFORMATION
  Report Type: Report from Study
  Country: DE (occurrence: DE)
  Receive Date: 20180813
  Receipt Date: 20181025
  Transmission Date: 20190204
  Serious: Yes (Other)
  Sender: FDA-Public Use
  Company Number: PHHY2017DE158240

PATIENT
  Sex: Male
  Weight: 85 kg

DRUGS (29)
  1. COSENTYX [Suspect]
     Active Substance: SECUKINUMAB
     Dosage: 150 MG, PER APPLICATION
     Route: 065
     Dates: start: 20170330, end: 20170404
  2. NARATRIPTAN [Concomitant]
     Active Substance: NARATRIPTAN HYDROCHLORIDE
     Indication: MIGRAINE
     Dosage: 2.5 MG, PRN
     Route: 048
     Dates: start: 20170504, end: 20170808
  3. COSENTYX [Suspect]
     Active Substance: SECUKINUMAB
     Dosage: 300 MG, PER APPLICATION
     Route: 065
     Dates: start: 20170105, end: 20170105
  4. COSENTYX [Suspect]
     Active Substance: SECUKINUMAB
     Dosage: 150 MG, UNK
     Route: 065
     Dates: start: 20170524
  5. COSENTYX [Suspect]
     Active Substance: SECUKINUMAB
     Dosage: 150 MG, UNK
     Route: 065
     Dates: start: 20170907
  6. IBUPROFEN. [Concomitant]
     Active Substance: IBUPROFEN
     Indication: PAIN
     Dosage: 800 MG, QW3
     Route: 048
     Dates: start: 1998
  7. COSENTYX [Suspect]
     Active Substance: SECUKINUMAB
     Dosage: 150 MG, UNK
     Route: 065
     Dates: start: 20170608
  8. COSENTYX [Suspect]
     Active Substance: SECUKINUMAB
     Dosage: 150 MG, UNK
     Route: 065
     Dates: start: 20171012
  9. COSENTYX [Suspect]
     Active Substance: SECUKINUMAB
     Dosage: 150 MG, UNK
     Route: 065
     Dates: start: 20170622
  10. COSENTYX [Suspect]
     Active Substance: SECUKINUMAB
     Dosage: 150 MG, UNK
     Route: 065
     Dates: start: 20170629
  11. COSENTYX [Suspect]
     Active Substance: SECUKINUMAB
     Dosage: 150 MG, UNK
     Route: 065
     Dates: start: 20170703
  12. COSENTYX [Suspect]
     Active Substance: SECUKINUMAB
     Dosage: 150 MG, UNK
     Route: 065
     Dates: start: 20170808
  13. COSENTYX [Suspect]
     Active Substance: SECUKINUMAB
     Dosage: 150 MG, UNK
     Route: 065
     Dates: start: 20170823
  14. COSENTYX [Suspect]
     Active Substance: SECUKINUMAB
     Dosage: 150 MG, UNK
     Route: 065
     Dates: start: 20171214
  15. COSENTYX [Suspect]
     Active Substance: SECUKINUMAB
     Dosage: 150 MG, UNK
     Route: 065
     Dates: start: 20180208, end: 20180208
  16. COSENTYX [Suspect]
     Active Substance: SECUKINUMAB
     Dosage: 150 MG, UNK
     Route: 065
     Dates: start: 20170727
  17. COSENTYX [Suspect]
     Active Substance: SECUKINUMAB
     Dosage: 150 MG, UNK
     Route: 065
     Dates: start: 20171026
  18. COSENTYX [Suspect]
     Active Substance: SECUKINUMAB
     Dosage: 150 MG, UNK
     Route: 065
     Dates: start: 20171116
  19. COSENTYX [Suspect]
     Active Substance: SECUKINUMAB
     Dosage: 150 MG, UNK
     Route: 065
     Dates: start: 20180111
  20. COSENTYX [Suspect]
     Active Substance: SECUKINUMAB
     Indication: ANKYLOSING SPONDYLITIS
     Dosage: 150 MG, PER APPLICATION
     Route: 065
     Dates: start: 20161209, end: 20161229
  21. COSENTYX [Suspect]
     Active Substance: SECUKINUMAB
     Dosage: 150 MG, PER APPLICATION
     Route: 065
     Dates: start: 20170427, end: 20170427
  22. ZALDIAR [Concomitant]
     Active Substance: ACETAMINOPHEN\TRAMADOL HYDROCHLORIDE
     Indication: MIGRAINE
     Dosage: 37.5/325 MG; EVERY 2-3 DAYS
     Route: 048
     Dates: start: 20170302, end: 20170503
  23. TALVOSILEN [Concomitant]
     Active Substance: ACETAMINOPHEN\CODEINE PHOSPHATE
     Indication: PAIN
     Dosage: 500 MG/30 MG; AS NEEDED, 2-3 X WEEK
     Route: 048
     Dates: start: 201507
  24. COSENTYX [Suspect]
     Active Substance: SECUKINUMAB
     Dosage: 300 MG, PER APPLICATION
     Route: 065
     Dates: start: 20170202, end: 20170302
  25. COSENTYX [Suspect]
     Active Substance: SECUKINUMAB
     Dosage: 150 MG, PER APPLICATION
     Route: 065
     Dates: start: 20170504
  26. COSENTYX [Suspect]
     Active Substance: SECUKINUMAB
     Dosage: 150 MG, UNK
     Route: 065
     Dates: start: 20170929
  27. COSENTYX [Suspect]
     Active Substance: SECUKINUMAB
     Dosage: 150 MG, UNK
     Route: 065
     Dates: start: 20171130
  28. COSENTYX [Suspect]
     Active Substance: SECUKINUMAB
     Dosage: 150 MG, UNK
     Route: 065
     Dates: start: 20171228
  29. NOVALGIN (METAMIZOLE SODIUM) [Concomitant]
     Active Substance: METAMIZOLE SODIUM
     Indication: HEADACHE
     Dosage: 50 DROPS; EVERY 3-4 DAYS
     Route: 048
     Dates: start: 2014

REACTIONS (7)
  - Vitamin D deficiency [Unknown]
  - Abdominal distension [Not Recovered/Not Resolved]
  - Respiratory tract infection [Recovered/Resolved]
  - Post-traumatic stress disorder [Recovering/Resolving]
  - Bronchitis [Recovered/Resolved]
  - Overdose [Not Recovered/Not Resolved]
  - Nasopharyngitis [Recovered/Resolved]

NARRATIVE: CASE EVENT DATE: 20170404
